FAERS Safety Report 5534150-3 (Version None)
Quarter: 2007Q4

REPORT INFORMATION
  Report Type: 
  Country: None (occurrence: None)
  Receive Date: 20071130
  Receipt Date: 20071116
  Transmission Date: 20080405
  Serious: No
  Sender: FDA-Public Use
  Company Number: 8028276

PATIENT
  Age: 9 Year
  Sex: Male
  Weight: 28 kg

DRUGS (2)
  1. EQUASYN [Suspect]
     Dosage: 20 MG 1/D
     Dates: start: 20070310
  2. MEDIKINET [Concomitant]

REACTIONS (1)
  - TIC [None]
